FAERS Safety Report 12810018 (Version 17)
Quarter: 2019Q1

REPORT INFORMATION
  Report Type: Spontaneous
  Country: US (occurrence: US)
  Receive Date: 20161005
  Receipt Date: 20190325
  Transmission Date: 20190417
  Serious: No
  Sender: FDA-Public Use
  Company Number: PHEH2016US025560

PATIENT
  Sex: Female
  Weight: 90.7 kg

DRUGS (3)
  1. ZOFRAN ODT [Suspect]
     Active Substance: ONDANSETRON HYDROCHLORIDE
     Indication: PRODUCT USED FOR UNKNOWN INDICATION
     Dosage: 01 DF, Q8H
     Route: 048
     Dates: start: 20140218, end: 20140410
  2. ZOFRAN [Suspect]
     Active Substance: ONDANSETRON HYDROCHLORIDE
     Indication: MORNING SICKNESS
     Dosage: 04 MG, Q6H
     Route: 042
     Dates: start: 20141001, end: 20141002
  3. ONDANSETRON [Suspect]
     Active Substance: ONDANSETRON
     Indication: MORNING SICKNESS
     Dosage: 08 MG, PRN
     Route: 048
     Dates: start: 20140218, end: 20140321

REACTIONS (5)
  - Anxiety [Unknown]
  - Maternal exposure during pregnancy [Unknown]
  - Injury [Unknown]
  - Product use in unapproved indication [Unknown]
  - Depression [Unknown]
